FAERS Safety Report 15254992 (Version 6)
Quarter: 2019Q1

REPORT INFORMATION
  Report Type: Report from Study
  Country: US (occurrence: US)
  Receive Date: 20180808
  Receipt Date: 20190326
  Transmission Date: 20190417
  Serious: Yes (Hospitalization)
  Sender: FDA-Public Use
  Company Number: US-OTSUKA-2017_025110

PATIENT
  Sex: Male

DRUGS (2)
  1. ABILIFY [Suspect]
     Active Substance: ARIPIPRAZOLE
     Indication: PRODUCT USED FOR UNKNOWN INDICATION
     Dosage: UNK
     Route: 065
  2. ARIPIPRAZOLE. [Suspect]
     Active Substance: ARIPIPRAZOLE
     Indication: PRODUCT USED FOR UNKNOWN INDICATION
     Dosage: 400 MG, QM (ADMINISTERED 2ND WEEK OF EVERY MONTH)
     Route: 065
     Dates: start: 20170328

REACTIONS (14)
  - Stress [Unknown]
  - Bronchitis [Unknown]
  - Somnolence [Unknown]
  - Influenza [Unknown]
  - Injection site pain [Unknown]
  - Asthma [Unknown]
  - Derealisation [Unknown]
  - Injury [Unknown]
  - Loss of employment [Unknown]
  - Secretion discharge [Unknown]
  - Hallucination, auditory [Unknown]
  - Nasopharyngitis [Unknown]
  - Abdominal discomfort [Unknown]
  - Depression [Unknown]
